FAERS Safety Report 9414144 (Version 1)
Quarter: 2013Q3

REPORT INFORMATION
  Report Type: Spontaneous
  Country: US (occurrence: US)
  Receive Date: 20130723
  Receipt Date: 20130723
  Transmission Date: 20140515
  Serious: Yes (Other)
  Sender: FDA-Public Use
  Company Number: US-PFIZER INC-2013213316

PATIENT
  Sex: Male

DRUGS (3)
  1. LYRICA [Suspect]
     Dosage: 100 MG, 3X/DAY
  2. LYRICA [Suspect]
     Dosage: 300 MG, 3X/DAY
     Dates: end: 20130101
  3. LYRICA [Suspect]
     Dosage: 300 MG, 2X/DAY
     Dates: start: 20130101

REACTIONS (6)
  - Cerebrovascular accident [Unknown]
  - Intentional drug misuse [Unknown]
  - Feeling hot [Unknown]
  - Burning sensation [Unknown]
  - Back pain [Unknown]
  - Feeling cold [Unknown]
